FAERS Safety Report 19091120 (Version 1)
Quarter: 2021Q2

REPORT INFORMATION
  Report Type: Spontaneous
  Country: SI (occurrence: SI)
  Receive Date: 20210405
  Receipt Date: 20210405
  Transmission Date: 20210717
  Serious: Yes (Hospitalization)
  Sender: FDA-Public Use
  Company Number: SI-JNJFOC-20210402501

PATIENT
  Age: 75 Year
  Sex: Female

DRUGS (6)
  1. ATORVASTATIN [Concomitant]
     Active Substance: ATORVASTATIN
     Dosage: DAILY DOSE 20 MG
  2. AMLODIPINE [Concomitant]
     Active Substance: AMLODIPINE BESYLATE
     Dosage: DAILY DOSE 10 MG
  3. INSULIN [Concomitant]
     Active Substance: INSULIN NOS
  4. PERINDOPRIL [Concomitant]
     Active Substance: PERINDOPRIL
     Dosage: DAILY DOSE 4 MG
  5. BISOPROLOL [Concomitant]
     Active Substance: BISOPROLOL
     Dosage: DAILY DOSE 5 MG
  6. XARELTO [Suspect]
     Active Substance: RIVAROXABAN
     Indication: PRODUCT USED FOR UNKNOWN INDICATION
     Dosage: 15 MG, QD
     Route: 048

REACTIONS (5)
  - Chronic kidney disease [Unknown]
  - Renal impairment [Unknown]
  - Fatigue [Unknown]
  - Atrial fibrillation [Unknown]
  - General physical health deterioration [Unknown]
